FAERS Safety Report 5012954-3 (Version None)
Quarter: 2006Q2

REPORT INFORMATION
  Report Type: 
  Country: None (occurrence: None)
  Receive Date: 20060530
  Receipt Date: 20060320
  Transmission Date: 20061013
  Serious: Yes (Hospitalization)
  Sender: FDA-Public Use
  Company Number: JP-BRACCO-BRO-009897

PATIENT
  Sex: Female
  Weight: 46 kg

DRUGS (7)
  1. IOPAMIRON [Suspect]
     Indication: CALCULUS URETERIC
     Route: 042
     Dates: start: 20050805, end: 20050805
  2. IOPAMIRON [Suspect]
     Route: 042
     Dates: start: 20050805, end: 20050805
  3. NORVASC                            /00972401/ [Concomitant]
     Route: 050
  4. UROCALUN [Concomitant]
     Route: 050
     Dates: start: 20050802, end: 20050804
  5. COSPANON [Concomitant]
     Route: 050
     Dates: start: 20050802, end: 20050804
  6. GASCON [Concomitant]
     Route: 050
     Dates: start: 20050804, end: 20050804
  7. PURSENNID                          /01627401/ [Concomitant]
     Route: 050
     Dates: start: 20050804, end: 20050804

REACTIONS (8)
  - ALANINE AMINOTRANSFERASE INCREASED [None]
  - ANAPHYLACTIC SHOCK [None]
  - ASPARTATE AMINOTRANSFERASE INCREASED [None]
  - BLOOD PRESSURE DECREASED [None]
  - DISCOMFORT [None]
  - LIVER DISORDER [None]
  - PRURITUS GENERALISED [None]
  - RASH [None]
